FAERS Safety Report 23185961 (Version 3)
Quarter: 2024Q1

REPORT INFORMATION
  Report Type: Spontaneous
  Country: GB (occurrence: GB)
  Receive Date: 20231115
  Receipt Date: 20240105
  Transmission Date: 20240410
  Serious: Yes (Death, Hospitalization, Other)
  Sender: FDA-Public Use
  Company Number: None

PATIENT

DRUGS (1)
  1. ZONISAMIDE [Suspect]
     Active Substance: ZONISAMIDE
     Indication: Epilepsy
     Dosage: UNK (ZONEGRAN)
     Dates: start: 201607, end: 201611

REACTIONS (4)
  - Renal cancer [Fatal]
  - Renal mass [Unknown]
  - Cough [Unknown]
  - Renal impairment [Unknown]

NARRATIVE: CASE EVENT DATE: 20170828
